FAERS Safety Report 20155561 (Version 19)
Quarter: 2022Q4

REPORT INFORMATION
  Report Type: Report from Study
  Country: US (occurrence: US)
  Receive Date: 20211207
  Receipt Date: 20221220
  Transmission Date: 20230113
  Serious: Yes (Other)
  Sender: FDA-Public Use
  Company Number: US-NOVARTISPH-NVSC2021US277523

PATIENT
  Sex: Female
  Weight: 75.283 kg

DRUGS (7)
  1. TREPROSTINIL [Suspect]
     Active Substance: TREPROSTINIL
     Indication: Pulmonary arterial hypertension
     Dosage: 17 NG/KG/MIN, CONT (CONCENTRATION: 1 MG/ML)
     Route: 042
     Dates: start: 20211129
  2. TREPROSTINIL [Suspect]
     Active Substance: TREPROSTINIL
     Dosage: 26 NG/KG/MIN, CONT (CONCENTRATION: 1 MG/ML)
     Route: 042
  3. TREPROSTINIL [Suspect]
     Active Substance: TREPROSTINIL
     Dosage: 30 NG/KG/MIN, CONT (CONCENTRATION: 1MG/ML)
     Route: 042
  4. TREPROSTINIL [Suspect]
     Active Substance: TREPROSTINIL
     Dosage: 34 NG/KG/MIN, CONT (CONCENTRATION: 1 MG/ML)
     Route: 042
  5. TREPROSTINIL [Suspect]
     Active Substance: TREPROSTINIL
     Dosage: 38 NG/KG/MIN, CONT (CONCENTRATION: 1 MG/ML)
     Route: 042
  6. TREPROSTINIL [Suspect]
     Active Substance: TREPROSTINIL
     Dosage: 40 NG/KG/MIN, CONT (CONCENTRATION: 2.5 MG/ML)
     Route: 042
  7. CHLORHEXIDINE [Suspect]
     Active Substance: CHLORHEXIDINE
     Indication: Product used for unknown indication
     Dosage: UNK
     Route: 065

REACTIONS (15)
  - Complication associated with device [Recovered/Resolved]
  - Ligament sprain [Unknown]
  - Skin irritation [Unknown]
  - Presyncope [Unknown]
  - Seasonal allergy [Unknown]
  - Sinusitis [Unknown]
  - Weight decreased [Unknown]
  - Diarrhoea [Unknown]
  - Nausea [Unknown]
  - Headache [Not Recovered/Not Resolved]
  - Vomiting [Unknown]
  - Dizziness [Unknown]
  - Rash [Unknown]
  - Administration site irritation [Unknown]
  - Infusion site rash [Unknown]
